FAERS Safety Report 16885051 (Version 1)
Quarter: 2019Q4

REPORT INFORMATION
  Report Type: Spontaneous
  Country: US (occurrence: US)
  Receive Date: 20191004
  Receipt Date: 20191004
  Transmission Date: 20200122
  Serious: No
  Sender: FDA-Public Use
  Company Number: US-PFIZER INC-2019427812

PATIENT
  Age: 50 Year
  Sex: Male

DRUGS (2)
  1. LIPITOR [Suspect]
     Active Substance: ATORVASTATIN CALCIUM
     Dosage: UNK
  2. JYNARQUE [Interacting]
     Active Substance: TOLVAPTAN
     Dosage: UNK

REACTIONS (2)
  - Drug interaction [Unknown]
  - Drug intolerance [Unknown]
